FAERS Safety Report 6222143-2 (Version None)
Quarter: 2009Q2

REPORT INFORMATION
  Report Type: 
  Country: None (occurrence: None)
  Receive Date: 20090611
  Receipt Date: 20080425
  Transmission Date: 20091009
  Serious: Yes (Other)
  Sender: FDA-Public Use
  Company Number: US-ASTRAZENECA-2006UW27590

PATIENT
  Age: 14877 Day
  Sex: Female

DRUGS (7)
  1. SEROQUEL [Suspect]
     Indication: DEPRESSION
     Route: 048
     Dates: start: 20000101, end: 20000101
  2. RISPERDAL [Suspect]
     Dosage: 1 MG, 4 MG, 5 MG
     Dates: start: 20010101, end: 20061001
  3. RISPERDAL [Suspect]
     Dosage: 1 MG, 2 MG , 8 MG
  4. ZYPREXA [Suspect]
     Dosage: STRENGTH 10 MG, 15 MG
     Dates: start: 20000224
  5. PROZAC [Concomitant]
     Dosage: 20 MG, 40 MG, 80 MG
     Route: 048
     Dates: start: 19940823
  6. COGENTIN [Concomitant]
     Dosage: 1 MG, 2 MG
     Dates: start: 19921119
  7. LOXITANE [Concomitant]
     Route: 048
     Dates: start: 19921119

REACTIONS (3)
  - DIABETES MELLITUS [None]
  - DIABETIC NEUROPATHY [None]
  - TYPE 2 DIABETES MELLITUS [None]
